FAERS Safety Report 5233050-6 (Version None)
Quarter: 2007Q1

REPORT INFORMATION
  Report Type: 
  Country: None (occurrence: None)
  Receive Date: 20070207
  Receipt Date: 20070205
  Transmission Date: 20070707
  Serious: Yes (Other)
  Sender: FDA-Public Use
  Company Number: US-BOEHRINGER INGELHEIM PHARMACEUTICALS, INC.-2007-BP-01738BP

PATIENT
  Sex: Male

DRUGS (8)
  1. COMBIVENT [Suspect]
     Indication: CHRONIC OBSTRUCTIVE PULMONARY DISEASE
     Route: 055
     Dates: start: 19970101
  2. PREDNISONE [Concomitant]
  3. MAGNESIUM [Concomitant]
  4. DIOVAN [Concomitant]
  5. FORADIL [Concomitant]
  6. FLOVENT [Concomitant]
  7. ZITHROMAX [Concomitant]
  8. PROVIGIL [Concomitant]

REACTIONS (2)
  - MUSCLE SPASMS [None]
  - SKIN CANCER [None]
